FAERS Safety Report 8397271-6 (Version None)
Quarter: 2012Q2

REPORT INFORMATION
  Report Type: 
  Country: None (occurrence: None)
  Receive Date: 20120531
  Receipt Date: 20120529
  Transmission Date: 20120825
  Serious: Yes (Death)
  Sender: FDA-Public Use
  Company Number: US-BRISTOL-MYERS SQUIBB COMPANY-15966013

PATIENT
  Age: 59 Year
  Sex: Male
  Weight: 84 kg

DRUGS (9)
  1. RESTORIL [Concomitant]
     Dosage: AT BED TIME
  2. NEXIUM [Concomitant]
     Route: 042
  3. YERVOY [Suspect]
     Indication: MALIGNANT MELANOMA
     Dosage: NO. OF DOSES: 2, TWICE SEPARATED BY 3 WEEKS ALSO 250MG
     Route: 042
     Dates: start: 20110706, end: 20110726
  4. CO-Q-10 PLUS [Concomitant]
  5. PRILOSEC [Concomitant]
  6. RED YEAST RICE [Concomitant]
  7. LACTULOSE [Concomitant]
  8. LOVAZA [Concomitant]
     Dosage: HELD DURING/ BEFORE YERVOY
  9. ALLOPURINOL [Concomitant]

REACTIONS (6)
  - AUTOIMMUNE HEPATITIS [None]
  - RENAL FAILURE [None]
  - FLATULENCE [None]
  - RESPIRATORY DISTRESS [None]
  - ABDOMINAL PAIN [None]
  - HEPATIC ENCEPHALOPATHY [None]
